FAERS Safety Report 10189315 (Version 1)
Quarter: 2014Q2

REPORT INFORMATION
  Report Type: Spontaneous
  Country: US (occurrence: US)
  Receive Date: 20140522
  Receipt Date: 20140522
  Transmission Date: 20141212
  Serious: Yes (Other)
  Sender: FDA-Public Use
  Company Number: PHHY2014US060163

PATIENT
  Age: 22 Year
  Sex: Male

DRUGS (2)
  1. SULFAMETHOXAZOLE+TRIMETHOPRIM [Suspect]
     Indication: RASH PUSTULAR
     Dosage: 480 MG, BID
  2. SULFAMETHOXAZOLE+TRIMETHOPRIM [Suspect]
     Indication: DERMATITIS PAPILLARIS CAPILLITII

REACTIONS (11)
  - Hypersensitivity vasculitis [Recovering/Resolving]
  - Rash erythematous [Recovering/Resolving]
  - Rash papular [Recovering/Resolving]
  - Rash pruritic [Recovering/Resolving]
  - Pain [Recovering/Resolving]
  - Skin lesion [Recovering/Resolving]
  - Blister [Recovering/Resolving]
  - Pruritus [Recovering/Resolving]
  - Oedema peripheral [Recovering/Resolving]
  - Scar [Unknown]
  - Skin hyperpigmentation [Unknown]
